FAERS Safety Report 15371606 (Version 2)
Quarter: 2018Q3

REPORT INFORMATION
  Report Type: Spontaneous
  Country: US (occurrence: US)
  Receive Date: 20180911
  Receipt Date: 20180927
  Transmission Date: 20181010
  Serious: No
  Sender: FDA-Public Use
  Company Number: US-TEVA-2018-US-951905

PATIENT
  Age: 74 Year
  Sex: Female

DRUGS (1)
  1. MODAFINIL. [Suspect]
     Active Substance: MODAFINIL
     Route: 065

REACTIONS (2)
  - Rash [Unknown]
  - Pruritus [Unknown]
